FAERS Safety Report 8495780-2 (Version None)
Quarter: 2012Q2

REPORT INFORMATION
  Report Type: 
  Country: None (occurrence: None)
  Receive Date: 20120629
  Receipt Date: 20120620
  Transmission Date: 20120825
  Serious: Yes (Hospitalization, Other)
  Sender: FDA-Public Use
  Company Number: 2011001365

PATIENT
  Age: 75 Year
  Sex: Female
  Weight: 64 kg

DRUGS (6)
  1. TARCEVA [Suspect]
     Indication: NON-SMALL CELL LUNG CANCER
     Dosage: , ORAL, , ORAL,   100 MG, UID/QD, ORAL, 150 MG, UID/QD, ORAL,  100 MG, UID/QD, ORAL
     Route: 048
     Dates: end: 20110315
  2. TARCEVA [Suspect]
     Indication: NON-SMALL CELL LUNG CANCER
     Dosage: , ORAL, , ORAL,   100 MG, UID/QD, ORAL, 150 MG, UID/QD, ORAL,  100 MG, UID/QD, ORAL
     Route: 048
     Dates: start: 20110310
  3. TARCEVA [Suspect]
     Indication: NON-SMALL CELL LUNG CANCER
     Dosage: , ORAL, , ORAL,   100 MG, UID/QD, ORAL, 150 MG, UID/QD, ORAL,  100 MG, UID/QD, ORAL
     Route: 048
     Dates: start: 20100501, end: 20100801
  4. MORPHINE (MORPHINE) TABLET [Concomitant]
  5. R04929097 (R04929097) [Suspect]
     Indication: NON-SMALL CELL LUNG CANCER
     Dosage: 20 MG, UID/QD ON DAYS 1-3, 8 0 AND 15 7, ORAL
     Route: 048
     Dates: start: 20110303, end: 20110314
  6. VICODIN [Concomitant]

REACTIONS (7)
  - ANAEMIA [None]
  - NAUSEA [None]
  - FATIGUE [None]
  - VOMITING [None]
  - MUSCULAR WEAKNESS [None]
  - NEURALGIA [None]
  - TREATMENT NONCOMPLIANCE [None]
